FAERS Safety Report 7883806-6 (Version None)
Quarter: 2011Q4

REPORT INFORMATION
  Report Type: 
  Country: None (occurrence: None)
  Receive Date: 20111102
  Receipt Date: 20111024
  Transmission Date: 20120403
  Serious: Yes (Death)
  Sender: FDA-Public Use
  Company Number: AU-ACTELION-A-CH2011-55926

PATIENT
  Sex: Male
  Weight: 60 kg

DRUGS (1)
  1. TRACLEER [Suspect]
     Indication: PULMONARY ARTERIAL HYPERTENSION
     Dosage: 62.5 MG, BID
     Route: 048
     Dates: start: 20111014, end: 20111023

REACTIONS (4)
  - AORTIC VALVE REPLACEMENT [None]
  - PULMONARY ARTERIAL HYPERTENSION [None]
  - DISEASE PROGRESSION [None]
  - RIGHT VENTRICULAR FAILURE [None]
